FAERS Safety Report 8821144 (Version 1)
Quarter: 2012Q4

REPORT INFORMATION
  Report Type: 
  Country: US (occurrence: US)
  Receive Date: 20121002
  Receipt Date: 20121002
  Transmission Date: 20130627
  Serious: No
  Sender: FDA-Public Use
  Company Number: US-BRISTOL-MYERS SQUIBB COMPANY-16230039

PATIENT
  Age: 34 Year
  Sex: Female

DRUGS (2)
  1. BUSPAR [Suspect]
  2. XANAX [Suspect]

REACTIONS (1)
  - Sedation [Unknown]
